FAERS Safety Report 5529472-6 (Version None)
Quarter: 2007Q4

REPORT INFORMATION
  Report Type: 
  Country: None (occurrence: None)
  Receive Date: 20071129
  Receipt Date: 20071115
  Transmission Date: 20080405
  Serious: Yes (Other)
  Sender: FDA-Public Use
  Company Number: GB-RANBAXY-2007RR-11498

PATIENT

DRUGS (5)
  1. CIPROFLOXACIN [Suspect]
     Indication: URINARY TRACT INFECTION
     Dosage: 200 MG, UNK
     Route: 048
     Dates: start: 20070921, end: 20070928
  2. ATENOLOL TABLETS BP 50MG [Concomitant]
     Indication: HYPERTENSION
     Dosage: 50 MG, UNK
     Route: 048
     Dates: start: 20070904
  3. DONEPEZIL HCL [Concomitant]
     Indication: DEMENTIA
     Dosage: 5 MG, UNK
     Route: 048
     Dates: start: 20070904
  4. MEMANTINE HCL [Concomitant]
     Indication: DEMENTIA
     Dosage: 10 MG, BID
     Route: 048
     Dates: start: 20070904, end: 20070911
  5. SULPIRIDE [Concomitant]
     Indication: DEMENTIA
     Dosage: 400 MG, BID
     Route: 048
     Dates: start: 20070907

REACTIONS (1)
  - PEMPHIGOID [None]
